FAERS Safety Report 19233380 (Version 2)
Quarter: 2021Q3

REPORT INFORMATION
  Report Type: Spontaneous
  Country: US (occurrence: US)
  Receive Date: 20210507
  Receipt Date: 20210728
  Transmission Date: 20211014
  Serious: No
  Sender: FDA-Public Use
  Company Number: US-PFIZER INC-2021401340

PATIENT
  Age: 61 Year
  Sex: Female

DRUGS (4)
  1. IBRANCE [Suspect]
     Active Substance: PALBOCICLIB
     Dosage: 100 MG
     Dates: start: 20210408
  2. IBRANCE [Suspect]
     Active Substance: PALBOCICLIB
     Dosage: 100 UNK
     Dates: start: 20210416
  3. IBRANCE [Suspect]
     Active Substance: PALBOCICLIB
     Dosage: 100 UNK
     Dates: start: 20210516
  4. IBRANCE [Suspect]
     Active Substance: PALBOCICLIB
     Dosage: 100 MG
     Dates: start: 20210316

REACTIONS (4)
  - Diarrhoea [Recovered/Resolved]
  - Taste disorder [Unknown]
  - Lip dry [Unknown]
  - Ageusia [Recovering/Resolving]

NARRATIVE: CASE EVENT DATE: 2021
